FAERS Safety Report 16725713 (Version 1)
Quarter: 2019Q3

REPORT INFORMATION
  Report Type: Spontaneous
  Country: TR (occurrence: TR)
  Receive Date: 20190821
  Receipt Date: 20190821
  Transmission Date: 20191005
  Serious: Yes (Other)
  Sender: FDA-Public Use
  Company Number: TR-PFIZER INC-2019352287

PATIENT
  Age: 18 Year
  Sex: Female

DRUGS (1)
  1. METHYLPREDNISOLONE ACETATE. [Suspect]
     Active Substance: METHYLPREDNISOLONE ACETATE
     Indication: MULTIPLE SCLEROSIS
     Dosage: UNK
     Route: 042

REACTIONS (4)
  - Mental disorder [Recovered/Resolved]
  - Acute psychosis [Recovered/Resolved]
  - Product use issue [Unknown]
  - Off label use [Unknown]
